FAERS Safety Report 4525190-1 (Version None)
Quarter: 2004Q4

REPORT INFORMATION
  Report Type: 
  Country: None (occurrence: None)
  Receive Date: 20041116
  Receipt Date: 20040804
  Transmission Date: 20050328
  Serious: No
  Sender: FDA-Public Use
  Company Number: S04-USA-04919-01

PATIENT
  Age: 92 Year
  Sex: Female

DRUGS (7)
  1. NAMENDA [Suspect]
     Indication: DEMENTIA
     Dosage: 5 MG QD PO
     Route: 048
     Dates: start: 20040728, end: 20040803
  2. NAMENDA [Suspect]
     Indication: DEMENTIA
     Dosage: 5 MG BID PO
     Route: 048
     Dates: start: 20040804
  3. HYDROCHLOROTHIAZIDE [Concomitant]
  4. CEELBREX (CELECOXIB) [Concomitant]
  5. PREDNISONE TAB [Concomitant]
  6. MULTIVITAMIN [Concomitant]
  7. MIACALCIN [Concomitant]

REACTIONS (1)
  - CONFUSIONAL STATE [None]
